FAERS Safety Report 8220356-1 (Version None)
Quarter: 2012Q1

REPORT INFORMATION
  Report Type: 
  Country: None (occurrence: None)
  Receive Date: 20120320
  Receipt Date: 20120309
  Transmission Date: 20120608
  Serious: Yes (Other)
  Sender: FDA-Public Use
  Company Number: TR-CELGENEUS-161-21880-10121129

PATIENT
  Sex: Female
  Weight: 68 kg

DRUGS (5)
  1. ASPIRIN [Suspect]
     Dosage: 100 MILLIGRAM
     Route: 048
     Dates: start: 20101115
  2. PREDNISONE [Concomitant]
     Indication: MULTIPLE MYELOMA
     Dosage: 120 MILLIGRAM
     Route: 065
     Dates: start: 20101115, end: 20101118
  3. REVLIMID [Suspect]
     Indication: MULTIPLE MYELOMA
     Dosage: 10 MILLIGRAM
     Route: 048
     Dates: start: 20101119, end: 20101206
  4. MELPHALAN HYDROCHLORIDE [Concomitant]
     Indication: MULTIPLE MYELOMA
     Dosage: .15 MILLIGRAM/KILOGRAM
     Route: 065
     Dates: start: 20101115, end: 20101118
  5. DEXAMETHASONE [Suspect]
     Indication: MULTIPLE MYELOMA
     Dosage: 40 MILLIGRAM
     Route: 065
     Dates: start: 20101119, end: 20101206

REACTIONS (7)
  - INSOMNIA [None]
  - URINARY RETENTION [None]
  - PAIN [None]
  - URINARY TRACT INFECTION [None]
  - DECREASED APPETITE [None]
  - WEIGHT DECREASED [None]
  - OEDEMA PERIPHERAL [None]
